FAERS Safety Report 6732391-0 (Version None)
Quarter: 2010Q2

REPORT INFORMATION
  Report Type: 
  Country: None (occurrence: None)
  Receive Date: 20100519
  Receipt Date: 20100513
  Transmission Date: 20101027
  Serious: Yes (Death)
  Sender: FDA-Public Use
  Company Number: CA-ROCHE-702734

PATIENT
  Age: 48 Year
  Weight: 79 kg

DRUGS (11)
  1. AVASTIN [Suspect]
     Indication: DRUG USE FOR UNKNOWN INDICATION
     Route: 042
  2. ADALAT CC [Concomitant]
     Dosage: DOSAGE FORM: TABLET EXTENDED RELEASE
     Route: 048
  3. ALLOPURINOL [Concomitant]
     Route: 048
  4. FERROUS SULFATE TAB [Concomitant]
     Route: 048
  5. FLUOROURACIL [Concomitant]
     Dosage: ROUTE: IV (NOT OTHERWISE SPECIFIED)
     Route: 042
  6. HYDRODIURIL [Concomitant]
     Route: 048
  7. LEUCOVORIN CALCIUM [Concomitant]
     Route: 042
  8. LYRICA [Concomitant]
     Route: 048
  9. OXAZEPAM [Concomitant]
     Route: 048
  10. STATEX [Concomitant]
     Route: 048
  11. ATIVAN [Concomitant]
     Route: 048

REACTIONS (7)
  - ABDOMINAL PAIN [None]
  - GASTROINTESTINAL DISORDER [None]
  - GASTROINTESTINAL PERFORATION [None]
  - MULTI-ORGAN FAILURE [None]
  - PERITONEAL FLUID ANALYSIS ABNORMAL [None]
  - PERITONITIS [None]
  - SEPTIC SHOCK [None]
